FAERS Safety Report 7378363-7 (Version None)
Quarter: 2011Q1

REPORT INFORMATION
  Report Type: 
  Country: None (occurrence: None)
  Receive Date: 20110328
  Receipt Date: 20110316
  Transmission Date: 20110831
  Serious: Yes (Hospitalization, Other)
  Sender: FDA-Public Use
  Company Number: US-ELI_LILLY_AND_COMPANY-US201102004952

PATIENT
  Sex: Male
  Weight: 153.29 kg

DRUGS (19)
  1. METFORMIN [Concomitant]
     Indication: DIABETES MELLITUS
  2. DIOVAN [Concomitant]
     Indication: HYPERTENSION
  3. BEVACIZUMAB [Suspect]
     Indication: NON-SMALL CELL LUNG CANCER
     Dosage: 15 MG/KG, EVERY 21 DAYS
     Route: 042
     Dates: start: 20100524, end: 20100804
  4. BEVACIZUMAB [Suspect]
     Dosage: 15 MG/KG, EVERY 21 DAYS
     Route: 042
     Dates: start: 20100824, end: 20101201
  5. PEMETREXED [Suspect]
     Dosage: 500 MG/M2, Q 21 DAYS
     Route: 042
     Dates: start: 20100824, end: 20110209
  6. CARBOPLATIN [Suspect]
     Indication: NON-SMALL CELL LUNG CANCER
     Dosage: 6 AUC EVERY 21 DAYS
     Route: 042
     Dates: start: 20100524, end: 20100804
  7. OMEPRAZOLE [Concomitant]
     Indication: GASTROOESOPHAGEAL REFLUX DISEASE
  8. COUMADIN [Concomitant]
  9. CARVEDILOL [Concomitant]
     Indication: HYPERTENSION
  10. ZYPREXA [Concomitant]
     Indication: DEPRESSION
  11. OXYCODONE HCL AND ACETAMINOPHEN [Concomitant]
     Indication: BACK PAIN
  12. TRAZODONE [Concomitant]
     Indication: INSOMNIA
  13. POTASSIUM CHLORIDE [Concomitant]
     Indication: SUPPLEMENTATION THERAPY
  14. FOLIC ACID [Concomitant]
     Indication: SUPPLEMENTATION THERAPY
  15. VITAMIN B-12 [Concomitant]
     Indication: SUPPLEMENTATION THERAPY
  16. PEMETREXED [Suspect]
     Indication: NON-SMALL CELL LUNG CANCER
     Dosage: 500 MG/M2, EVERY 21 DAYS
     Route: 042
     Dates: start: 20100524, end: 20100804
  17. LOVASTATIN [Concomitant]
     Indication: HYPERCHOLESTEROLAEMIA
  18. WELCHOL [Concomitant]
     Indication: DIARRHOEA
  19. LASIX [Concomitant]
     Indication: CHRONIC OBSTRUCTIVE PULMONARY DISEASE

REACTIONS (18)
  - DYSPNOEA [None]
  - CARDIAC VENTRICULAR DISORDER [None]
  - DEHYDRATION [None]
  - BLOOD CREATININE INCREASED [None]
  - ENTEROBACTER SEPSIS [None]
  - DILATATION VENTRICULAR [None]
  - DEVICE DISLOCATION [None]
  - HAEMORRHOIDAL HAEMORRHAGE [None]
  - NODULE [None]
  - DIASTOLIC DYSFUNCTION [None]
  - OEDEMA [None]
  - DIARRHOEA [None]
  - SEPSIS [None]
  - BLOOD UREA INCREASED [None]
  - DEVICE RELATED INFECTION [None]
  - NEUTROPENIA [None]
  - ASTHENIA [None]
  - ORTHOSTATIC HYPOTENSION [None]
